FAERS Safety Report 4681097-0 (Version None)
Quarter: 2005Q2

REPORT INFORMATION
  Report Type: 
  Country: None (occurrence: None)
  Receive Date: 20050601
  Receipt Date: 20050520
  Transmission Date: 20051028
  Serious: Yes (Other)
  Sender: FDA-Public Use
  Company Number: 2005054619

PATIENT
  Age: 52 Year
  Sex: Female
  Weight: 95.2554 kg

DRUGS (6)
  1. BEXTRA [Suspect]
     Indication: OSTEOARTHRITIS
     Dosage: ORAL
     Route: 048
     Dates: start: 20041101, end: 20041108
  2. ATENOLOL [Concomitant]
  3. LISINOPRIL [Concomitant]
  4. ROFECOXIB [Concomitant]
  5. LANSOPRAZOLE [Concomitant]
  6. ESCITALOPRAM OXALATE [Concomitant]

REACTIONS (6)
  - ALOPECIA [None]
  - DRUG HYPERSENSITIVITY [None]
  - DRY SKIN [None]
  - FOOD ALLERGY [None]
  - HAIR TEXTURE ABNORMAL [None]
  - SKIN EXFOLIATION [None]
